FAERS Safety Report 21208304 (Version 1)
Quarter: 2022Q3

REPORT INFORMATION
  Report Type: Spontaneous
  Country: US (occurrence: None)
  Receive Date: 20220811
  Receipt Date: 20220811
  Transmission Date: 20221026
  Serious: Yes (Hospitalization)
  Sender: FDA-Public Use
  Company Number: None

PATIENT
  Age: 55 Year
  Sex: Female
  Weight: 86.8 kg

DRUGS (7)
  1. BEBTELOVIMAB [Suspect]
     Active Substance: BEBTELOVIMAB
     Dosage: FREQUENCY : ONCE;?
     Route: 042
     Dates: start: 20220802, end: 20220802
  2. REVLIMID [Suspect]
     Active Substance: LENALIDOMIDE
     Indication: COVID-19
     Dosage: FREQUENCY : DAILY;?
     Route: 042
     Dates: start: 20220802, end: 20220808
  3. BACLOFEN [Concomitant]
  4. AMPICILLIN SODIUM\SULBACTAM SODIUM [Concomitant]
     Active Substance: AMPICILLIN SODIUM\SULBACTAM SODIUM
  5. ENOXAPARIN [Concomitant]
  6. IPRATROPIUM/ALBUTEROL [Concomitant]
  7. PROBIOTIC [Concomitant]

REACTIONS (4)
  - Wound infection [None]
  - Mental status changes [None]
  - Seizure [None]
  - Urinary tract infection [None]

NARRATIVE: CASE EVENT DATE: 20220806
